FAERS Safety Report 6140526-6 (Version None)
Quarter: 2009Q2

REPORT INFORMATION
  Report Type: 
  Country: None (occurrence: None)
  Receive Date: 20090402
  Receipt Date: 20070924
  Transmission Date: 20091009
  Serious: Yes (Death, Hospitalization, Other)
  Sender: FDA-Public Use
  Company Number: US-ASTRAZENECA-2006UW21153

PATIENT
  Age: 18319 Day
  Sex: Male
  Weight: 129.9 kg

DRUGS (15)
  1. SEROQUEL [Suspect]
     Indication: DEPRESSION
     Route: 048
     Dates: start: 19980101, end: 20040101
  2. SEROQUEL [Suspect]
     Dosage: 25-200 MG
     Route: 048
  3. AMIODARONE HCL [Concomitant]
  4. ZOLOFT [Concomitant]
  5. COUMADIN [Concomitant]
  6. DEPAKOTE [Concomitant]
  7. TOPROL-XL [Concomitant]
  8. CLONIDINE [Concomitant]
  9. LASIX [Concomitant]
  10. LISINOPRIL [Concomitant]
  11. IMDUR [Concomitant]
  12. RISPERDAL [Concomitant]
  13. CATAPRES [Concomitant]
  14. LOPRESSOR [Concomitant]
  15. RILOSEC [Concomitant]

REACTIONS (19)
  - ARTERIOSCLEROSIS [None]
  - BACK PAIN [None]
  - BRONCHITIS [None]
  - CARDIAC FAILURE CONGESTIVE [None]
  - CEREBROVASCULAR ACCIDENT [None]
  - CONVULSION [None]
  - CORONARY ARTERY DISEASE [None]
  - DEATH [None]
  - DERMATITIS CONTACT [None]
  - DIABETES MELLITUS [None]
  - DIABETIC KETOACIDOSIS [None]
  - EYE INFECTION [None]
  - HYPERTENSION [None]
  - HYPOKALAEMIA [None]
  - INSOMNIA [None]
  - LACERATION [None]
  - OEDEMA PERIPHERAL [None]
  - PERIPHERAL VASCULAR DISORDER [None]
  - UPPER RESPIRATORY TRACT INFECTION [None]
